FAERS Safety Report 13855048 (Version 1)
Quarter: 2017Q3

REPORT INFORMATION
  Report Type: Spontaneous
  Country: JP (occurrence: JP)
  Receive Date: 20170810
  Receipt Date: 20170810
  Transmission Date: 20171127
  Serious: Yes (Other)
  Sender: FDA-Public Use
  Company Number: JP-PFIZER INC-2017338911

PATIENT

DRUGS (1)
  1. LEUCOVORIN 3MG [Suspect]
     Active Substance: LEUCOVORIN
     Route: 040

REACTIONS (3)
  - Vascular pain [Unknown]
  - Vasculitis [Unknown]
  - Product preparation error [Unknown]
